FAERS Safety Report 11731413 (Version 1)
Quarter: 2015Q4

REPORT INFORMATION
  Report Type: Spontaneous
  Country: US (occurrence: US)
  Receive Date: 20151110
  Receipt Date: 20151110
  Transmission Date: 20160304
  Serious: No
  Sender: FDA-Public Use
  Company Number: US-ELI_LILLY_AND_COMPANY-US201112005200

PATIENT
  Sex: Female

DRUGS (1)
  1. FORTEO [Suspect]
     Active Substance: TERIPARATIDE
     Indication: OSTEOPOROSIS
     Route: 065

REACTIONS (5)
  - Dizziness [Unknown]
  - Intentional product misuse [Not Recovered/Not Resolved]
  - Adverse drug reaction [Unknown]
  - Hypoaesthesia [Unknown]
  - Palpitations [Unknown]
